FAERS Safety Report 10748878 (Version 1)
Quarter: 2015Q1

REPORT INFORMATION
  Report Type: Report from Study
  Country: RO (occurrence: RO)
  Receive Date: 20150129
  Receipt Date: 20150129
  Transmission Date: 20150721
  Serious: Yes (Death)
  Sender: FDA-Public Use
  Company Number: RO-ABBVIE-15P-135-1339144-00

PATIENT
  Sex: Female

DRUGS (1)
  1. DUODOPA [Suspect]
     Active Substance: CARBIDOPA\LEVODOPA
     Indication: PRODUCT USED FOR UNKNOWN INDICATION
     Dosage: MD: 6 ML CR: 3.2 ML ED: 1.5 ML
     Route: 050
     Dates: start: 20121015, end: 20141222

REACTIONS (3)
  - Hypertension [Fatal]
  - Cardio-respiratory arrest [Fatal]
  - Cardiac failure [Fatal]
